FAERS Safety Report 5930724-6 (Version None)
Quarter: 2008Q4

REPORT INFORMATION
  Report Type: 
  Country: None (occurrence: None)
  Receive Date: 20081022
  Receipt Date: 20081008
  Transmission Date: 20090506
  Serious: Yes (Hospitalization)
  Sender: FDA-Public Use
  Company Number: 590481

PATIENT
  Age: 88 Year
  Sex: Female

DRUGS (5)
  1. TORSEMIDE [Suspect]
     Dosage: ORAL
     Route: 048
     Dates: start: 20071201
  2. OMEPRAZOLE [Concomitant]
  3. ZOLPIDEM TARTRATE [Concomitant]
  4. TRAMADOL HCL [Concomitant]
  5. TARKA [Concomitant]

REACTIONS (4)
  - BRADYCARDIA [None]
  - HYPERHIDROSIS [None]
  - HYPERKALAEMIA [None]
  - HYPOTENSION [None]
